FAERS Safety Report 20219345 (Version 1)
Quarter: 2021Q4

REPORT INFORMATION
  Report Type: Other
  Country: SE (occurrence: SE)
  Receive Date: 20211222
  Receipt Date: 20211222
  Transmission Date: 20220304
  Serious: Yes (Hospitalization)
  Sender: FDA-Public Use
  Company Number: None

PATIENT

DRUGS (2)
  1. OMNIPAQUE [Suspect]
     Active Substance: IOHEXOL
     Indication: Computerised tomogram
     Dosage: UNK, SINGLE
     Route: 042
     Dates: start: 20200831, end: 20200831
  2. OMNIPAQUE [Suspect]
     Active Substance: IOHEXOL
     Indication: Product used for unknown indication

REACTIONS (3)
  - Drug-induced liver injury [Recovered/Resolved with Sequelae]
  - Eosinophilia [Recovered/Resolved with Sequelae]
  - Rash macular [Recovered/Resolved with Sequelae]

NARRATIVE: CASE EVENT DATE: 20200902
